FAERS Safety Report 9499106 (Version 3)
Quarter: 2013Q4

REPORT INFORMATION
  Report Type: Report from Study
  Country: BR (occurrence: BR)
  Receive Date: 20130904
  Receipt Date: 20131015
  Transmission Date: 20140711
  Serious: Yes (Hospitalization)
  Sender: FDA-Public Use
  Company Number: BR-US-EMD SERONO, INC.-7234304

PATIENT
  Age: 21 Year
  Sex: Female

DRUGS (2)
  1. REBIF [Suspect]
     Indication: RELAPSING-REMITTING MULTIPLE SCLEROSIS
     Dates: start: 20130626
  2. GARDENAL                           /00023201/ [Concomitant]
     Indication: EPILEPSY

REACTIONS (13)
  - Cyanosis [Recovered/Resolved]
  - Malaise [Recovered/Resolved]
  - Abdominal pain upper [Recovered/Resolved]
  - Nausea [Recovered/Resolved]
  - Headache [Recovered/Resolved]
  - Apathy [Recovered/Resolved]
  - Neck pain [Recovered/Resolved]
  - Mood altered [Recovered/Resolved]
  - Liver function test abnormal [Recovered/Resolved]
  - Fatigue [Recovered/Resolved]
  - Injection site bruising [Recovered/Resolved]
  - Injection site haematoma [Recovered/Resolved]
  - Injection site erythema [Recovered/Resolved]
